FAERS Safety Report 4524648-9 (Version None)
Quarter: 2004Q4

REPORT INFORMATION
  Report Type: 
  Country: None (occurrence: None)
  Receive Date: 20041117
  Receipt Date: 20031024
  Transmission Date: 20050328
  Serious: Yes (Other)
  Sender: FDA-Public Use
  Company Number: C2003-2796.01

PATIENT
  Age: 58 Year
  Sex: Female

DRUGS (13)
  1. CLOZAPINE [Suspect]
     Indication: PSYCHOTIC DISORDER
     Dosage: 25MG HS, THEN 25MG BID, ORAL
     Route: 048
     Dates: start: 20031001, end: 20031024
  2. ACETAMINOPHEN [Concomitant]
  3. CARBIDOPA AND LEVODOPA [Concomitant]
  4. CLONAZEPAM [Concomitant]
  5. ENTACAPONE [Concomitant]
  6. ESOMEPRAZOLE MAGNESIUM [Concomitant]
  7. FERROUS SULFATE TAB [Concomitant]
  8. HALOPERIDOL [Concomitant]
  9. MEPERIDINE [Concomitant]
  10. MILK OF MAGNESIA TAB [Concomitant]
  11. MULTIVITAMIN WITH MINERALS [Concomitant]
  12. ROPINIROLE [Concomitant]
  13. TRIHEXYPHENIDYL HCL [Concomitant]

REACTIONS (2)
  - LEUKOPENIA [None]
  - NEUTROPENIA [None]
